FAERS Safety Report 8004547-0 (Version None)
Quarter: 2011Q4

REPORT INFORMATION
  Report Type: 
  Country: None (occurrence: None)
  Receive Date: 20111220
  Receipt Date: 20111206
  Transmission Date: 20120403
  Serious: Yes (Hospitalization)
  Sender: FDA-Public Use
  Company Number: GER/UKI/11/0022247

PATIENT
  Age: 89 Year
  Sex: Female

DRUGS (4)
  1. CLARITHROMYCIN [Suspect]
     Indication: RESPIRATORY TRACT INFECTION
     Dosage: ORAL
     Route: 048
  2. TRIMETHOPRIM [Concomitant]
  3. RAMIPRIL [Concomitant]
  4. FLUOXETINE HYDROCHLORIDE [Suspect]
     Indication: PRODUCT USED FOR UNKNOWN INDICATION
     Dosage: 20 MG, ORAL
     Route: 048

REACTIONS (6)
  - INHIBITORY DRUG INTERACTION [None]
  - GAIT DISTURBANCE [None]
  - ATRIAL FIBRILLATION [None]
  - RESPIRATORY TRACT INFECTION [None]
  - SEROTONIN SYNDROME [None]
  - TOXICITY TO VARIOUS AGENTS [None]
